FAERS Safety Report 6814963-8 (Version None)
Quarter: 2010Q3

REPORT INFORMATION
  Report Type: 
  Country: None (occurrence: None)
  Receive Date: 20100702
  Receipt Date: 20100625
  Transmission Date: 20110219
  Serious: Yes (Hospitalization)
  Sender: FDA-Public Use
  Company Number: GR-MPIJNJ-2010-03247

PATIENT

DRUGS (10)
  1. VELCADE [Suspect]
     Indication: MULTIPLE MYELOMA
     Dosage: UNK
     Dates: start: 20100311, end: 20100505
  2. GLIMEPIRIDE [Concomitant]
     Dosage: UNK
  3. IRBESARTAN [Concomitant]
     Dosage: UNK
  4. ACYCLOVIR [Concomitant]
     Dosage: UNK
     Route: 048
  5. ALLOPURINOL [Concomitant]
     Dosage: UNK
     Route: 048
  6. PANTOPRAZOLE [Concomitant]
     Dosage: UNK
     Route: 048
  7. BACTRIM [Concomitant]
     Dosage: UNK
     Route: 048
  8. FOLIC ACID [Concomitant]
     Dosage: UNK
     Route: 048
  9. DARBEPOETIN ALFA [Concomitant]
     Dosage: UNK
     Route: 058
  10. ZOLEDRONIC ACID [Concomitant]
     Dosage: UNK
     Route: 042
     Dates: start: 20100311

REACTIONS (1)
  - INFECTION [None]
